FAERS Safety Report 12252728 (Version 2)
Quarter: 2016Q2

REPORT INFORMATION
  Report Type: Spontaneous
  Country: FR (occurrence: FR)
  Receive Date: 20160411
  Receipt Date: 20160603
  Transmission Date: 20160815
  Serious: Yes (Hospitalization, Disabling)
  Sender: FDA-Public Use
  Company Number: FR-SA-2016SA069115

PATIENT
  Age: 81 Year
  Sex: Male

DRUGS (1)
  1. CEREZYME [Suspect]
     Active Substance: IMIGLUCERASE
     Route: 042

REACTIONS (3)
  - Fall [Unknown]
  - Cerebrovascular accident [Recovered/Resolved with Sequelae]
  - Hip fracture [Recovered/Resolved]
